FAERS Safety Report 5117170-2 (Version None)
Quarter: 2006Q3

REPORT INFORMATION
  Report Type: 
  Country: None (occurrence: None)
  Receive Date: 20060927
  Receipt Date: 20060927
  Transmission Date: 20061208
  Serious: Yes (Hospitalization)
  Sender: FDA-Public Use
  Company Number: None

PATIENT
  Sex: Female
  Weight: 64 kg

DRUGS (6)
  1. FLUDARABINE [Suspect]
     Indication: STEM CELL TRANSPLANT
     Dosage: 54 ONCE DAILY IV DRIP
     Route: 041
     Dates: start: 20060620, end: 20060624
  2. CAMPAT [Suspect]
     Indication: STEM CELL TRANSPLANT
     Dosage: 20 ONCE DAILY IV DRIP
     Route: 041
     Dates: start: 20060620, end: 20060624
  3. MELPHALAN [Suspect]
     Dosage: 250 MG ONCE DAILY IV DRIP
     Route: 041
     Dates: start: 20060625, end: 20060625
  4. PROGRAF [Concomitant]
  5. DIFLUCAN [Concomitant]
  6. ACYCLOVIR [Concomitant]

REACTIONS (3)
  - FOLLICULITIS [None]
  - HEADACHE [None]
  - RASH [None]
